FAERS Safety Report 9693177 (Version 2)
Quarter: 2013Q4

REPORT INFORMATION
  Report Type: Spontaneous
  Country: US (occurrence: US)
  Receive Date: 20131118
  Receipt Date: 20131118
  Transmission Date: 20140711
  Serious: Yes (Hospitalization, Other)
  Sender: FDA-Public Use
  Company Number: US-PFIZER INC-2013273216

PATIENT
  Sex: Female

DRUGS (3)
  1. CARDIZEM [Suspect]
     Dosage: UNK
  2. VERAPAMIL HCL [Suspect]
     Dosage: UNK
  3. CALAN [Concomitant]
     Dosage: UNK

REACTIONS (7)
  - Neoplasm malignant [Unknown]
  - Lip swelling [Unknown]
  - Swollen tongue [Unknown]
  - Swelling [Unknown]
  - Hypoaesthesia [Unknown]
  - Dysgraphia [Unknown]
  - Malaise [Unknown]
